FAERS Safety Report 18676412 (Version 4)
Quarter: 2021Q2

REPORT INFORMATION
  Report Type: Spontaneous
  Country: JP (occurrence: JP)
  Receive Date: 20201229
  Receipt Date: 20210603
  Transmission Date: 20210717
  Serious: Yes (Death, Life-Threatening, Hospitalization, Disabling, Other)
  Sender: FDA-Public Use
  Company Number: JP-009507513-1908JPN000137J

PATIENT
  Age: 78 Year
  Sex: Male
  Weight: 59 kg

DRUGS (10)
  1. PEMETREXED DISODIUM [Suspect]
     Active Substance: PEMETREXED DISODIUM
     Indication: LUNG ADENOCARCINOMA STAGE IV
     Dosage: 860 MILLIGRAM, ONCE
     Route: 051
     Dates: start: 20190704, end: 20190704
  2. ROZEREM [Concomitant]
     Active Substance: RAMELTEON
     Indication: INSOMNIA
     Dosage: 8 MILLIGRAM, QD
     Route: 048
  3. BLOSTAR M [Concomitant]
     Indication: GASTROOESOPHAGEAL REFLUX DISEASE
     Dosage: 20 MILLIGRAM, BID
     Route: 048
     Dates: end: 20190723
  4. KEYTRUDA [Suspect]
     Active Substance: PEMBROLIZUMAB
     Indication: LUNG ADENOCARCINOMA STAGE IV
     Dosage: 200 MILLIGRAM, ONCE
     Route: 041
     Dates: start: 20190704, end: 20190704
  5. CARBOPLATIN. [Suspect]
     Active Substance: CARBOPLATIN
     Indication: LUNG ADENOCARCINOMA STAGE IV
     Dosage: 470 MILLIGRAM, ONCE
     Route: 051
     Dates: start: 20190704, end: 20190704
  6. TEPRENONE [Concomitant]
     Active Substance: TEPRENONE
     Indication: CHRONIC GASTRITIS
     Dosage: 50 MILLIGRAM, TID
     Route: 048
     Dates: end: 20190820
  7. PANVITAN [ASCORBIC ACID;CALCIUM PANTOTHENATE;CYANOCOBALAMIN;ERGOCALCIF [Concomitant]
     Indication: PROPHYLAXIS
     Dosage: 1 GRAM, QD
     Route: 048
     Dates: start: 20190624
  8. BROTIZOLAM [Concomitant]
     Active Substance: BROTIZOLAM
     Indication: INSOMNIA
     Dosage: 0.5 MILLIGRAM, QD
     Route: 048
     Dates: end: 20190802
  9. CONSTAN [ALPRAZOLAM] [Concomitant]
     Active Substance: ALPRAZOLAM
     Indication: INSOMNIA
     Dosage: 0.4 MILLIGRAM, BID
     Route: 048
     Dates: end: 20190802
  10. MAGNESIUM OXIDE. [Concomitant]
     Active Substance: MAGNESIUM OXIDE
     Indication: CONSTIPATION
     Dosage: 330 MILLIGRAM, QID
     Route: 048

REACTIONS (3)
  - Myelosuppression [Unknown]
  - Malignant neoplasm progression [Fatal]
  - Myasthenia gravis [Recovering/Resolving]

NARRATIVE: CASE EVENT DATE: 2019
